FAERS Safety Report 10177880 (Version 2)
Quarter: 2014Q3

REPORT INFORMATION
  Report Type: Report from Study
  Country: US (occurrence: US)
  Receive Date: 20140516
  Receipt Date: 20140711
  Transmission Date: 20150326
  Serious: Yes (Other)
  Sender: FDA-Public Use
  Company Number: US-ABBVIE-14P-163-1236452-00

PATIENT
  Age: 33 Year
  Sex: Female

DRUGS (14)
  1. MINIVELLE [Concomitant]
     Active Substance: ESTRADIOL
     Indication: PRODUCT USED FOR UNKNOWN INDICATION
     Dates: start: 20140702
  2. SEROQUEL [Concomitant]
     Active Substance: QUETIAPINE FUMARATE
     Indication: PRODUCT USED FOR UNKNOWN INDICATION
     Dosage: AT NIGHT
  3. LUPRON DEPOT [Suspect]
     Active Substance: LEUPROLIDE ACETATE
     Indication: ENDOMETRIOSIS
     Dates: start: 2004
  4. LEXAPRO [Concomitant]
     Active Substance: ESCITALOPRAM OXALATE
     Indication: DEPRESSION
  5. RANITIDINE [Concomitant]
     Active Substance: RANITIDINE\RANITIDINE HYDROCHLORIDE
     Indication: DYSPEPSIA
  6. NORETHINDRONE ACETATE. [Concomitant]
     Active Substance: NORETHINDRONE ACETATE
     Indication: PRODUCT USED FOR UNKNOWN INDICATION
     Dates: start: 20140604
  7. OSCAL [Concomitant]
     Active Substance: CALCIUM CARBONATE
     Indication: MINERAL SUPPLEMENTATION
  8. MEGACE [Concomitant]
     Active Substance: MEGESTROL ACETATE
     Indication: WEIGHT CONTROL
  9. BIRTH CONTROL PIILLS [Concomitant]
     Indication: PRODUCT USED FOR UNKNOWN INDICATION
  10. CLONAZEPAM. [Concomitant]
     Active Substance: CLONAZEPAM
     Indication: ANXIETY
  11. PROTONIX [Concomitant]
     Active Substance: PANTOPRAZOLE SODIUM
     Indication: DYSPEPSIA
  12. LUPRON DEPOT [Suspect]
     Active Substance: LEUPROLIDE ACETATE
     Dates: start: 20140604
  13. GENERESS FE [Concomitant]
     Active Substance: ETHINYL ESTRADIOL\FERROUS FUMARATE\NORETHINDRONE
     Indication: PRODUCT USED FOR UNKNOWN INDICATION
  14. IRON [Concomitant]
     Active Substance: IRON
     Indication: MINERAL SUPPLEMENTATION

REACTIONS (14)
  - Endometriosis [Recovering/Resolving]
  - Hot flush [Recovering/Resolving]
  - Insomnia [Unknown]
  - Migraine [Recovering/Resolving]
  - Arthralgia [Recovered/Resolved]
  - Hot flush [Not Recovered/Not Resolved]
  - Osteogenesis imperfecta [Unknown]
  - Adhesion [Recovering/Resolving]
  - Anaemia [Unknown]
  - Migraine [Unknown]
  - Mood swings [Recovering/Resolving]
  - Cyst [Recovering/Resolving]
  - Depression [Recovering/Resolving]
  - Blood iron decreased [Recovered/Resolved]

NARRATIVE: CASE EVENT DATE: 2004
